FAERS Safety Report 12467304 (Version 1)
Quarter: 2016Q2

REPORT INFORMATION
  Report Type: Spontaneous
  Country: US (occurrence: None)
  Receive Date: 20160614
  Receipt Date: 20160614
  Transmission Date: 20160815
  Serious: Yes (Disabling)
  Sender: FDA-Public Use
  Company Number: None

PATIENT
  Age: 66 Year
  Sex: Female
  Weight: 68.04 kg

DRUGS (1)
  1. BOTOX [Suspect]
     Active Substance: ONABOTULINUMTOXINA
     Indication: MIGRAINE
     Dosage: INTO THE MUSCLE
     Route: 030
     Dates: start: 20160602, end: 20160602

REACTIONS (3)
  - Head lag [None]
  - Neck pain [None]
  - Muscular weakness [None]

NARRATIVE: CASE EVENT DATE: 20160603
